FAERS Safety Report 12610100 (Version 2)
Quarter: 2016Q3

REPORT INFORMATION
  Report Type: Spontaneous
  Country: IT (occurrence: IT)
  Receive Date: 20160801
  Receipt Date: 20160805
  Transmission Date: 20161109
  Serious: Yes (Hospitalization)
  Sender: FDA-Public Use
  Company Number: IT-TEVA-680782ACC

PATIENT
  Age: 68 Year
  Sex: Male

DRUGS (3)
  1. XANAX [Suspect]
     Active Substance: ALPRAZOLAM
     Indication: DRUG ABUSE
     Route: 048
     Dates: start: 20160715, end: 20160715
  2. SIRDALUD - 2 MG COMPRESSE - NOVARTIS FARMA S.P.A. [Suspect]
     Active Substance: TIZANIDINE HYDROCHLORIDE
     Indication: DRUG ABUSE
     Dosage: 20 DF TOTAL
     Route: 048
     Dates: start: 20160715, end: 20160715
  3. ZOLOFT [Suspect]
     Active Substance: SERTRALINE HYDROCHLORIDE
     Indication: DRUG ABUSE
     Dosage: 15 DF TOTAL
     Route: 048
     Dates: start: 20160715, end: 20160715

REACTIONS (2)
  - Drug abuse [Recovered/Resolved]
  - Coma [Recovered/Resolved]

NARRATIVE: CASE EVENT DATE: 20160715
